FAERS Safety Report 18031233 (Version 1)
Quarter: 2020Q3

REPORT INFORMATION
  Report Type: Spontaneous
  Country: US (occurrence: US)
  Receive Date: 20200716
  Receipt Date: 20200716
  Transmission Date: 20201103
  Serious: No
  Sender: FDA-Public Use
  Company Number: US-SLATE RUN PHARMACEUTICALS-20US000229

PATIENT

DRUGS (11)
  1. BUPROPION HYDROCHLORIDE EXTENDED RELEASE USP (XL) [Suspect]
     Active Substance: BUPROPION HYDROCHLORIDE
     Indication: BIPOLAR DISORDER
  2. ARIPIPRAZOL [Concomitant]
     Active Substance: ARIPIPRAZOLE
     Indication: PRODUCT USED FOR UNKNOWN INDICATION
     Dosage: 15 MILLIGRAM, BEDTIME
     Route: 048
  3. VESICARE [Concomitant]
     Active Substance: SOLIFENACIN SUCCINATE
     Indication: MICTURITION URGENCY
     Dosage: 10 MILLIGRAM, QD
     Route: 048
  4. VALSARTAN. [Concomitant]
     Active Substance: VALSARTAN
     Indication: HYPERTENSION
     Dosage: 160 / 12.5 MILLIGRAM
     Route: 048
  5. OMEPRAZOLE. [Concomitant]
     Active Substance: OMEPRAZOLE
     Indication: GASTROOESOPHAGEAL REFLUX DISEASE
     Dosage: 20 MILLIGRAM, BID
     Route: 048
  6. HYDROXIZINE HCL [Concomitant]
     Indication: ANXIETY
     Dosage: 10 MILLIGRAM, PRN
     Route: 048
  7. BUPROPION HYDROCHLORIDE EXTENDED RELEASE USP (XL) [Suspect]
     Active Substance: BUPROPION HYDROCHLORIDE
     Indication: BIPOLAR I DISORDER
     Dosage: 300 MILLIGRAM
     Route: 048
     Dates: start: 202006
  8. ALPRAZOLAM ER [Concomitant]
     Active Substance: ALPRAZOLAM
     Indication: BIPOLAR DISORDER
     Dosage: 2 MILLIGRAM, QD
     Route: 048
  9. LEVOTHYROXINE. [Concomitant]
     Active Substance: LEVOTHYROXINE
     Indication: HYPOTHYROIDISM
     Dosage: 150 MICROGRAM, 2/WEEK
     Route: 048
  10. LEVOTHYROXINE. [Concomitant]
     Active Substance: LEVOTHYROXINE
     Dosage: 100 MICROGRAM, 5/WEEK
     Route: 048
  11. ZALEPLON. [Concomitant]
     Active Substance: ZALEPLON
     Indication: SLEEP DISORDER
     Dosage: 10 MILLIGRAM, BEDTIME
     Route: 048

REACTIONS (5)
  - Off label use [Unknown]
  - Abdominal pain upper [Not Recovered/Not Resolved]
  - Lethargy [Not Recovered/Not Resolved]
  - Diarrhoea [Not Recovered/Not Resolved]
  - Constipation [Not Recovered/Not Resolved]

NARRATIVE: CASE EVENT DATE: 202006
